FAERS Safety Report 4820520-5 (Version None)
Quarter: 2005Q4

REPORT INFORMATION
  Report Type: 
  Country: None (occurrence: None)
  Receive Date: 20051104
  Receipt Date: 20051024
  Transmission Date: 20060501
  Serious: Yes (Other)
  Sender: FDA-Public Use
  Company Number: AU-GLAXOSMITHKLINE-B0398795A

PATIENT
  Age: 46 Year
  Sex: Female

DRUGS (6)
  1. NICABATE CQ CLEAR 21MG [Suspect]
     Dosage: 21MG PER DAY
     Route: 062
     Dates: start: 20051002
  2. NOTEN [Concomitant]
  3. ZOCOR [Concomitant]
  4. CLOPIDOGREL BISULFATE [Concomitant]
  5. NEXIUM [Concomitant]
  6. XANAX [Concomitant]
     Indication: ANXIETY

REACTIONS (5)
  - AMNESIA [None]
  - BALANCE DISORDER [None]
  - CEREBROVASCULAR ACCIDENT [None]
  - HYPOAESTHESIA [None]
  - POOR QUALITY DRUG ADMINISTERED [None]
